FAERS Safety Report 18143896 (Version 1)
Quarter: 2020Q3

REPORT INFORMATION
  Report Type: Spontaneous
  Country: US (occurrence: US)
  Receive Date: 20200813
  Receipt Date: 20200813
  Transmission Date: 20201103
  Serious: Yes (Hospitalization, Other)
  Sender: FDA-Public Use
  Company Number: US-SUN PHARMACEUTICAL INDUSTRIES LTD-2020R1-256636

PATIENT
  Age: 25 Year
  Sex: Female

DRUGS (3)
  1. DILTIAZEM. [Suspect]
     Active Substance: DILTIAZEM
     Indication: PRODUCT USED FOR UNKNOWN INDICATION
     Dosage: 16.2 GRAM (186 MG/KG)
     Route: 065
  2. TRAZODONE [Suspect]
     Active Substance: TRAZODONE HYDROCHLORIDE
     Indication: PRODUCT USED FOR UNKNOWN INDICATION
     Dosage: 3 GRAM (35 MG/KG)
     Route: 065
  3. PROMETHAZINE [Suspect]
     Active Substance: PROMETHAZINE HYDROCHLORIDE
     Indication: PRODUCT USED FOR UNKNOWN INDICATION
     Dosage: 1.5 GRAM (17 MG/KG)
     Route: 065

REACTIONS (7)
  - Tachycardia [Recovered/Resolved]
  - Hypotension [Recovered/Resolved]
  - Multiple organ dysfunction syndrome [Recovered/Resolved]
  - Overdose [Unknown]
  - Lactic acidosis [Recovered/Resolved]
  - Suicide attempt [Unknown]
  - Encephalopathy [Recovered/Resolved]
